APPROVED DRUG PRODUCT: RESECTISOL
Active Ingredient: MANNITOL
Strength: 5GM/100ML
Dosage Form/Route: SOLUTION;IRRIGATION
Application: N016704 | Product #002
Applicant: B BRAUN MEDICAL INC
Approved: Approved Prior to Jan 1, 1982 | RLD: No | RS: No | Type: DISCN